FAERS Safety Report 15580927 (Version 4)
Quarter: 2018Q4

REPORT INFORMATION
  Report Type: Report from Study
  Country: US (occurrence: US)
  Receive Date: 20181102
  Receipt Date: 20181221
  Transmission Date: 20190205
  Serious: Yes (Death, Hospitalization)
  Sender: FDA-Public Use
  Company Number: US-BAUSCH-BL-2018-030404

PATIENT
  Age: 72 Year
  Sex: Male
  Weight: 77.63 kg

DRUGS (2)
  1. XIFAXAN [Suspect]
     Active Substance: RIFAXIMIN
     Indication: HEPATIC ENCEPHALOPATHY
     Route: 048
     Dates: start: 20181019
  2. MIDODRINE [Concomitant]
     Active Substance: MIDODRINE
     Indication: HYPOTENSION
     Dosage: ONE AND HALF TABLET
     Route: 048
     Dates: start: 20181030

REACTIONS (6)
  - Liver disorder [Not Recovered/Not Resolved]
  - Death [Fatal]
  - Bacteraemia [Not Recovered/Not Resolved]
  - Mental status changes [Not Recovered/Not Resolved]
  - Confusional state [Not Recovered/Not Resolved]
  - Tinnitus [Not Recovered/Not Resolved]

NARRATIVE: CASE EVENT DATE: 2018
